FAERS Safety Report 22596012 (Version 1)
Quarter: 2023Q2

REPORT INFORMATION
  Report Type: Spontaneous
  Country: US (occurrence: None)
  Receive Date: 20230613
  Receipt Date: 20230613
  Transmission Date: 20230722
  Serious: No
  Sender: FDA-Public Use
  Company Number: 2023A134068

PATIENT
  Sex: Female

DRUGS (1)
  1. SYMBICORT [Suspect]
     Active Substance: BUDESONIDE\FORMOTEROL FUMARATE DIHYDRATE
     Dosage: 80.0UG UNKNOWN
     Route: 055

REACTIONS (6)
  - Dyspnoea [Unknown]
  - Feeling abnormal [Unknown]
  - Tachycardia [Unknown]
  - Intentional device use issue [Unknown]
  - Wrong technique in device usage process [Unknown]
  - Device use issue [Unknown]
